FAERS Safety Report 9624772 (Version 2)
Quarter: 2013Q4

REPORT INFORMATION
  Report Type: Spontaneous
  Country: US (occurrence: US)
  Receive Date: 20131015
  Receipt Date: 20131015
  Transmission Date: 20140711
  Serious: Yes (Hospitalization, Other)
  Sender: FDA-Public Use
  Company Number: US-GILEAD-2013-0084122

PATIENT
  Sex: Male

DRUGS (6)
  1. LETAIRIS [Suspect]
     Indication: PULMONARY HYPERTENSION
     Dosage: 10 MG, QD
     Route: 048
     Dates: start: 20121219
  2. LETAIRIS [Suspect]
     Indication: SICKLE CELL ANAEMIA
  3. REMODULIN [Concomitant]
     Dates: start: 20130809
  4. OXYGEN [Concomitant]
  5. ALDACTONE                          /00006201/ [Concomitant]
  6. LASIX                              /00032601/ [Concomitant]

REACTIONS (3)
  - Haemolysis [Unknown]
  - Sickle cell anaemia with crisis [Recovered/Resolved]
  - Anaemia [Unknown]
